FAERS Safety Report 7067992-6 (Version None)
Quarter: 2010Q4

REPORT INFORMATION
  Report Type: 
  Country: None (occurrence: None)
  Receive Date: 20101020
  Receipt Date: 20101013
  Transmission Date: 20110411
  Serious: Yes (Hospitalization, Other)
  Sender: FDA-Public Use
  Company Number: 2010SP054478

PATIENT
  Age: 79 Year
  Sex: Male
  Weight: 98 kg

DRUGS (10)
  1. HEPALEAN, USP (HEPARIN SODIUM /00027704/) [Suspect]
     Indication: PRODUCT USED FOR UNKNOWN INDICATION
     Dosage: IV
     Route: 042
  2. HEPARIN [Suspect]
     Indication: PRODUCT USED FOR UNKNOWN INDICATION
     Dosage: IV
     Route: 042
  3. DIMENHYDRINATE [Concomitant]
  4. INSULIN [Concomitant]
  5. LAXATIVE OF CHOICE [Concomitant]
  6. LIPITOR [Concomitant]
  7. METOPROLOL [Concomitant]
  8. MORPHINE [Concomitant]
  9. NORVASC [Concomitant]
  10. ZOPICLONE [Concomitant]

REACTIONS (4)
  - BLUE TOE SYNDROME [None]
  - FINGER AMPUTATION [None]
  - HEPARIN-INDUCED THROMBOCYTOPENIA [None]
  - TOE AMPUTATION [None]
